FAERS Safety Report 7230520-6 (Version None)
Quarter: 2011Q1

REPORT INFORMATION
  Report Type: 
  Country: None (occurrence: None)
  Receive Date: 20110118
  Receipt Date: 20110105
  Transmission Date: 20110831
  Serious: Yes (Hospitalization, Other)
  Sender: FDA-Public Use
  Company Number: PHHY2010US46123

PATIENT
  Sex: Female

DRUGS (1)
  1. FEMARA [Suspect]
     Indication: NEOPLASM MALIGNANT
     Dosage: 2.5 MG, QD
     Route: 048
     Dates: start: 20091216

REACTIONS (6)
  - CELLULITIS [None]
  - TRANSIENT ISCHAEMIC ATTACK [None]
  - FOOT FRACTURE [None]
  - VISUAL IMPAIRMENT [None]
  - RECTAL HAEMORRHAGE [None]
  - CATARACT [None]
